FAERS Safety Report 21185733 (Version 4)
Quarter: 2022Q3

REPORT INFORMATION
  Report Type: Report from Study
  Country: US (occurrence: US)
  Receive Date: 20220808
  Receipt Date: 20220829
  Transmission Date: 20221027
  Serious: Yes (Other)
  Sender: FDA-Public Use
  Company Number: US-NOVARTISTESTPH-NVSC2022US178711

PATIENT
  Sex: Male

DRUGS (3)
  1. KESIMPTA [Suspect]
     Active Substance: OFATUMUMAB
     Indication: Multiple sclerosis
     Dosage: 20 MG
     Route: 058
     Dates: start: 20220804
  2. KESIMPTA [Suspect]
     Active Substance: OFATUMUMAB
     Dosage: 20 MG, QMO (20 MG/ 0.4 ML, INJECT 1 PEN 20MG SUBCUTANEOUSLY MONTHLY STARTING AT WEEK 4 AS DIRECTED)
     Route: 058
  3. RITALIN [Concomitant]
     Active Substance: METHYLPHENIDATE HYDROCHLORIDE
     Indication: Product used for unknown indication
     Dosage: UNK
     Route: 065

REACTIONS (11)
  - Tunnel vision [Unknown]
  - Presyncope [Unknown]
  - Muscular weakness [Unknown]
  - Feeling abnormal [Unknown]
  - Tremor [Unknown]
  - COVID-19 [Unknown]
  - Asthenia [Unknown]
  - Influenza like illness [Recovering/Resolving]
  - Pyrexia [Unknown]
  - Chills [Unknown]
  - Drug ineffective [Unknown]
